FAERS Safety Report 13497478 (Version 2)
Quarter: 2017Q2

REPORT INFORMATION
  Report Type: Spontaneous
  Country: FR (occurrence: FR)
  Receive Date: 20170428
  Receipt Date: 20170609
  Transmission Date: 20170830
  Serious: Yes (Death, Other)
  Sender: FDA-Public Use
  Company Number: FR-009507513-1704FRA014250

PATIENT
  Age: 90 Year
  Sex: Female
  Weight: 60 kg

DRUGS (5)
  1. JANUVIA [Suspect]
     Active Substance: SITAGLIPTIN PHOSPHATE
     Indication: TYPE 2 DIABETES MELLITUS
     Dosage: 1 DF, QD
     Route: 048
     Dates: start: 20101007
  2. MICARDIS PLUS [Concomitant]
     Active Substance: HYDROCHLOROTHIAZIDE\TELMISARTAN
     Indication: HYPERTENSION
     Dosage: STRENGTH: 80/25 (UNITS NOT PROVIDED), 1 DF, QD
  3. ZANIDIP [Concomitant]
     Active Substance: LERCANIDIPINE HYDROCHLORIDE
     Indication: HYPERTENSION
     Dosage: 1 DF, BID
  4. CYANOCOBALAMIN. [Concomitant]
     Active Substance: CYANOCOBALAMIN
     Indication: PERNICIOUS ANAEMIA
     Dosage: 1 DF, MONTHLY
  5. NOVO-NORM [Concomitant]
     Active Substance: REPAGLINIDE
     Indication: TYPE 2 DIABETES MELLITUS
     Dosage: STRENGTH: 0.5 (UNITS NOT PROVIDED), 1 TID
     Dates: start: 20110630

REACTIONS (3)
  - Pancreatic carcinoma metastatic [Fatal]
  - Metastases to liver [Fatal]
  - Acute coronary syndrome [Fatal]

NARRATIVE: CASE EVENT DATE: 201702
